FAERS Safety Report 9239706 (Version 1)
Quarter: 2013Q2

REPORT INFORMATION
  Report Type: Spontaneous
  Country: US (occurrence: US)
  Receive Date: 20130418
  Receipt Date: 20130418
  Transmission Date: 20140414
  Serious: Yes (Death)
  Sender: FDA-Public Use
  Company Number: US-TEVA-398107USA

PATIENT
  Age: 66 Year
  Sex: Male
  Weight: 67.65 kg

DRUGS (1)
  1. ACTIQ [Suspect]
     Indication: BREAKTHROUGH PAIN
     Route: 048

REACTIONS (1)
  - Anaplastic large cell lymphoma T- and null-cell types [Fatal]
